FAERS Safety Report 9400105 (Version 2)
Quarter: 2013Q3

REPORT INFORMATION
  Report Type: Spontaneous
  Country: US (occurrence: US)
  Receive Date: 20130715
  Receipt Date: 20130730
  Transmission Date: 20140515
  Serious: No
  Sender: FDA-Public Use
  Company Number: US-TEVA-418222USA

PATIENT
  Age: 29 Year
  Sex: Female
  Weight: 68.55 kg

DRUGS (7)
  1. PARAGARD 380A [Suspect]
     Indication: CONTRACEPTION
     Route: 015
     Dates: start: 20111215, end: 20130709
  2. PLAGVENEL [Concomitant]
  3. SULFASALAZINE [Concomitant]
  4. FOLIC ACID [Concomitant]
  5. ERGOCALCIFEROL [Concomitant]
  6. METHOTREXATE [Concomitant]
  7. METHOPREDNOSONE [Concomitant]

REACTIONS (1)
  - Device expulsion [Recovered/Resolved]
